FAERS Safety Report 5148684-7 (Version None)
Quarter: 2006Q4

REPORT INFORMATION
  Report Type: 
  Country: None (occurrence: None)
  Receive Date: 20060918
  Receipt Date: 20060417
  Transmission Date: 20070319
  Serious: Yes (Other)
  Sender: FDA-Public Use
  Company Number: US-JNJFOC-20060403860

PATIENT
  Age: 26 Year
  Sex: Female
  Weight: 70.3075 kg

DRUGS (2)
  1. TOPAMAX [Suspect]
     Indication: MIGRAINE PROPHYLAXIS
     Dosage: 150 MG, IN 1 DAY, ORAL
     Route: 048
     Dates: start: 20040101, end: 20060414
  2. LAMICTAL [Concomitant]

REACTIONS (1)
  - GLAUCOMA [None]
